FAERS Safety Report 5887824-9 (Version None)
Quarter: 2008Q3

REPORT INFORMATION
  Report Type: 
  Country: None (occurrence: None)
  Receive Date: 20080917
  Receipt Date: 20080917
  Transmission Date: 20090109
  Serious: Yes (Hospitalization)
  Sender: FDA-Public Use
  Company Number: None

PATIENT
  Age: 84 Year
  Sex: Male

DRUGS (1)
  1. ASPIRIN [Suspect]
     Indication: ISCHAEMIC HEART DISEASE PROPHYLAXIS
     Dosage: 81 MG EVERY DAY PO
     Route: 048
     Dates: start: 20020730, end: 20080101

REACTIONS (1)
  - LOWER GASTROINTESTINAL HAEMORRHAGE [None]
